FAERS Safety Report 8908111 (Version 2)
Quarter: 2012Q4

REPORT INFORMATION
  Report Type: 
  Country: JP (occurrence: JP)
  Receive Date: 20121114
  Receipt Date: 20121128
  Transmission Date: 20130627
  Serious: Yes (Death)
  Sender: FDA-Public Use
  Company Number: PHHY2012JP104668

PATIENT
  Sex: Female

DRUGS (3)
  1. CICLOSPORIN [Suspect]
     Indication: INTERSTITIAL LUNG DISEASE
     Dosage: 200 mg, UNK
     Route: 048
  2. CORTICOSTEROIDS [Suspect]
     Dosage: 1000 mg, QD
     Dates: start: 20080112
  3. CORTICOSTEROIDS [Suspect]
     Dosage: 1000 mg, QD
     Dates: start: 20080119

REACTIONS (2)
  - Tuberculosis [Fatal]
  - Dyspnoea [Fatal]
